FAERS Safety Report 24279515 (Version 1)
Quarter: 2024Q3

REPORT INFORMATION
  Report Type: Spontaneous
  Country: GB (occurrence: GB)
  Receive Date: 20240903
  Receipt Date: 20240903
  Transmission Date: 20241016
  Serious: Yes (Death)
  Sender: AMGEN
  Company Number: GB-AMGEN-GBRSP2024175170

PATIENT
  Sex: Male

DRUGS (1)
  1. LUMAKRAS [Suspect]
     Active Substance: SOTORASIB
     Indication: Neoplasm malignant
     Dosage: 480 MILLIGRAM, QD (120MG TABS 240)
     Route: 048

REACTIONS (2)
  - Death [Fatal]
  - Off label use [Unknown]
